FAERS Safety Report 9411396 (Version 1)
Quarter: 2013Q3

REPORT INFORMATION
  Report Type: Spontaneous
  Country: US (occurrence: US)
  Receive Date: 20130722
  Receipt Date: 20130722
  Transmission Date: 20140515
  Serious: Yes (Death, Other)
  Sender: FDA-Public Use
  Company Number: PHHY2013US076435

PATIENT
  Age: 51 Year
  Sex: Female

DRUGS (14)
  1. IFOSFAMIDE [Suspect]
     Indication: LEIOMYOSARCOMA METASTATIC
     Dosage: 1.5 G/M2 CYCLE 1
  2. IFOSFAMIDE [Suspect]
     Dosage: 1.8 G/M2 CYCLE 2
  3. IFOSFAMIDE [Suspect]
     Dosage: 2 G/M2 CYCLE 3
  4. PACLITAXEL [Suspect]
     Indication: LEIOMYOSARCOMA METASTATIC
  5. DOXORUBICIN [Suspect]
     Indication: LEIOMYOSARCOMA METASTATIC
  6. CHINESE HERBAL MEDICATIONS [Concomitant]
  7. FUROSEMIDE [Concomitant]
     Dosage: 200 MG
     Route: 042
  8. MESNA [Concomitant]
     Route: 042
  9. DEXTROSE [Concomitant]
     Route: 042
  10. SALINE [Concomitant]
     Route: 042
  11. GRANISETRON [Concomitant]
  12. DEXAMETHASONE [Concomitant]
  13. METOCLOPRAMIDE [Concomitant]
  14. GRANULOCYTE COLONY STIMULATING FACTOR [Concomitant]

REACTIONS (4)
  - Death [Fatal]
  - Leiomyosarcoma metastatic [Unknown]
  - Malignant neoplasm progression [Unknown]
  - Rash [Unknown]
